FAERS Safety Report 24550842 (Version 2)
Quarter: 2025Q3

REPORT INFORMATION
  Report Type: Spontaneous
  Country: US (occurrence: US)
  Receive Date: 20241025
  Receipt Date: 20250816
  Transmission Date: 20251021
  Serious: No
  Sender: ALEXION PHARMACEUTICALS
  Company Number: US-AstraZeneca-CH-00729410A

PATIENT
  Age: 44 Year
  Sex: Male
  Weight: 69.853 kg

DRUGS (1)
  1. ULTOMIRIS [Suspect]
     Active Substance: RAVULIZUMAB-CWVZ
     Indication: Myasthenia gravis

REACTIONS (4)
  - Symptom recurrence [Recovered/Resolved]
  - Off label use [Unknown]
  - Asthenia [Unknown]
  - Diplopia [Unknown]

NARRATIVE: CASE EVENT DATE: 20240101
